FAERS Safety Report 4466284-9 (Version None)
Quarter: 2004Q4

REPORT INFORMATION
  Report Type: 
  Country: None (occurrence: None)
  Receive Date: 20041005
  Receipt Date: 20040929
  Transmission Date: 20050328
  Serious: Yes (Death, Hospitalization)
  Sender: FDA-Public Use
  Company Number: PHRM2004FR02935

PATIENT
  Age: 82 Year
  Sex: Female

DRUGS (13)
  1. NITRIDERM TTS [Suspect]
     Dosage: 15 MG/24HOURS
     Route: 062
     Dates: end: 20040519
  2. ALPRESS [Suspect]
     Indication: ESSENTIAL HYPERTENSION
     Dosage: 2.5 MG, QD
     Route: 048
     Dates: start: 20040515, end: 20040517
  3. FUROSEMIDE [Suspect]
     Indication: RENAL FAILURE
     Dosage: 500 MG, QD
     Route: 042
     Dates: start: 20040511, end: 20040526
  4. AMLOR [Suspect]
     Indication: ESSENTIAL HYPERTENSION
     Dosage: 5 MG, QD
     Route: 048
  5. ADANCOR [Suspect]
     Dosage: 40 MG, QD
     Route: 048
     Dates: start: 20040511, end: 20040527
  6. BRICANYL [Concomitant]
  7. ATROVENT [Concomitant]
  8. CLARITIN [Concomitant]
  9. ESOMEPRAZOLE [Concomitant]
     Route: 048
  10. ASPIRIN [Concomitant]
     Route: 048
  11. UMULINE [Concomitant]
  12. NEORECORMON ^ROCHE^ [Concomitant]
  13. DIFFU K [Concomitant]
     Dosage: UNK, UNK
     Route: 048

REACTIONS (5)
  - CARDIAC FAILURE [None]
  - DEPRESSED LEVEL OF CONSCIOUSNESS [None]
  - FALL [None]
  - MULTI-ORGAN FAILURE [None]
  - SUBDURAL HAEMATOMA [None]
